FAERS Safety Report 7934818-5 (Version None)
Quarter: 2011Q4

REPORT INFORMATION
  Report Type: 
  Country: None (occurrence: None)
  Receive Date: 20111122
  Receipt Date: 20111117
  Transmission Date: 20120403
  Serious: Yes (Other)
  Sender: FDA-Public Use
  Company Number: CA-PFIZER INC-2011255665

PATIENT
  Age: 44 Year
  Sex: Male

DRUGS (3)
  1. ATROPINE SULFATE, DIPHENOXYLATE HCL [Suspect]
     Indication: ABDOMINAL PAIN
     Dosage: 0.6 MG, CYCLIC
     Dates: start: 20110920
  2. AVASTIN [Suspect]
     Indication: COLORECTAL CANCER METASTATIC
     Dosage: 407 MG, CYCLIC
     Dates: start: 20110920
  3. IRINOTECAN HCL [Suspect]
     Indication: COLORECTAL CANCER METASTATIC
     Dosage: 342 MG, CYCLIC
     Dates: start: 20110920

REACTIONS (1)
  - VISION BLURRED [None]
